FAERS Safety Report 10269027 (Version 1)
Quarter: 2014Q2

REPORT INFORMATION
  Report Type: Spontaneous
  Country: JP (occurrence: JP)
  Receive Date: 20140630
  Receipt Date: 20140630
  Transmission Date: 20141212
  Serious: Yes (Other)
  Sender: FDA-Public Use
  Company Number: JP-BAUSCH-BL-2014-002843

PATIENT
  Age: 35 Year
  Sex: Male

DRUGS (4)
  1. BROMFENAC SODIUM [Suspect]
     Indication: CYSTOID MACULAR OEDEMA
     Route: 047
  2. DORZOLAMIDE HYDROCHLORIDE [Suspect]
     Indication: CYSTOID MACULAR OEDEMA
     Route: 047
  3. TRIAMCINOLONE ACETONIDE [Suspect]
     Indication: CYSTOID MACULAR OEDEMA
     Route: 031
  4. BEVACIZUMAB [Suspect]
     Indication: CYSTOID MACULAR OEDEMA
     Route: 031

REACTIONS (4)
  - Cystoid macular oedema [Not Recovered/Not Resolved]
  - Metamorphopsia [Not Recovered/Not Resolved]
  - Off label use [Unknown]
  - Drug ineffective for unapproved indication [Unknown]
